FAERS Safety Report 8440192-0 (Version None)
Quarter: 2012Q2

REPORT INFORMATION
  Report Type: 
  Country: None (occurrence: None)
  Receive Date: 20120615
  Receipt Date: 20120611
  Transmission Date: 20120825
  Serious: Yes (Life-Threatening)
  Sender: FDA-Public Use
  Company Number: PT-ROCHE-1077551

PATIENT
  Age: 82 Year
  Sex: Female
  Weight: 69 kg

DRUGS (6)
  1. PANTOPRAZOLE [Concomitant]
     Indication: PROPHYLAXIS
     Route: 048
     Dates: start: 20120327, end: 20120327
  2. MABTHERA [Suspect]
     Dosage: DOSE:100MG/10ML
     Route: 042
     Dates: start: 20120327, end: 20120327
  3. ACETAMINOPHEN [Concomitant]
     Indication: ANTIPYRESIS
     Route: 048
     Dates: start: 20120327, end: 20120327
  4. MABTHERA [Suspect]
     Indication: CHRONIC LYMPHOCYTIC LEUKAEMIA
     Dosage: DOSE:500MG/50ML
     Route: 042
     Dates: start: 20120327, end: 20120327
  5. CLEMASTINE FURARATE [Concomitant]
     Indication: ANTIALLERGIC THERAPY
     Route: 042
     Dates: start: 20120327, end: 20120327
  6. HYDROCORTISONE [Concomitant]
     Route: 042
     Dates: start: 20120327, end: 20120327

REACTIONS (5)
  - HYPERTENSION [None]
  - MALAISE [None]
  - CYANOSIS [None]
  - LOSS OF CONSCIOUSNESS [None]
  - BLOOD GLUCOSE INCREASED [None]
